FAERS Safety Report 11176008 (Version 1)
Quarter: 2015Q2

REPORT INFORMATION
  Report Type: Report from Study
  Country: KR (occurrence: KR)
  Receive Date: 20150609
  Receipt Date: 20150609
  Transmission Date: 20150821
  Serious: Yes (Hospitalization)
  Sender: FDA-Public Use
  Company Number: KR-TAKEDA-2015TUS007488

PATIENT
  Age: 36 Year
  Sex: Female

DRUGS (5)
  1. CALCIUM CARBONATE. [Concomitant]
     Active Substance: CALCIUM CARBONATE
     Indication: CHRONIC KIDNEY DISEASE
     Dates: start: 20130806
  2. FEBUXOSTAT. [Suspect]
     Active Substance: FEBUXOSTAT
     Indication: GOUT
     Dosage: 40 MG, QD
     Route: 048
     Dates: start: 20140212
  3. TASNA [Concomitant]
     Indication: CHRONIC KIDNEY DISEASE
     Dates: start: 20130917, end: 20140311
  4. RENALMIN [Concomitant]
     Indication: VITAMIN SUPPLEMENTATION
     Dates: start: 20130326
  5. KREMEZIN FINE GRAN [Concomitant]
     Indication: CHRONIC KIDNEY DISEASE
     Dates: start: 20120907, end: 20140319

REACTIONS (1)
  - Hepatic encephalopathy [Recovered/Resolved]

NARRATIVE: CASE EVENT DATE: 20140222
